FAERS Safety Report 13921748 (Version 3)
Quarter: 2017Q3

REPORT INFORMATION
  Report Type: Spontaneous
  Country: JP (occurrence: JP)
  Receive Date: 20170830
  Receipt Date: 20170915
  Transmission Date: 20171127
  Serious: No
  Sender: FDA-Public Use
  Company Number: JP-PFIZER INC-2017372111

PATIENT
  Age: 36 Year
  Sex: Female
  Weight: 66.3 kg

DRUGS (7)
  1. CEFTRIAXONE SODIUM HYDRATE [Concomitant]
     Active Substance: CEFTRIAXONE SODIUM
     Dosage: 2 MG, 2X/DAY (2 MG,2 IN 1 D)
     Route: 065
     Dates: start: 20170601
  2. PROPOFOL. [Concomitant]
     Active Substance: PROPOFOL
     Dosage: 3 ML,1 HR
     Route: 065
     Dates: start: 20170601
  3. FOSPHENYTOIN SODIUM. [Suspect]
     Active Substance: FOSPHENYTOIN SODIUM
     Indication: SEIZURE
     Dosage: 375 MG, 1X/DAY
     Route: 041
     Dates: start: 20170601, end: 20170604
  4. FENTANYL. [Concomitant]
     Active Substance: FENTANYL
     Dosage: 2 ML,1 HR
     Route: 065
     Dates: start: 20170601
  5. MIDAZOLAM [Concomitant]
     Active Substance: MIDAZOLAM HYDROCHLORIDE
     Dosage: UNK, 2X/DAY (2 IN 1 D)
     Route: 065
     Dates: start: 20170601
  6. OMEPRAZOLE. [Concomitant]
     Active Substance: OMEPRAZOLE
     Dosage: 40 MG (20 MG, 2 IN 1 D)
     Route: 065
     Dates: start: 20170601
  7. VECURONIUM [Concomitant]
     Active Substance: VECURONIUM BROMIDE
     Dosage: 1 ML,1 HR
     Route: 065
     Dates: start: 20170602

REACTIONS (1)
  - Rash erythematous [Recovered/Resolved]

NARRATIVE: CASE EVENT DATE: 20170605
